FAERS Safety Report 7171504-6 (Version None)
Quarter: 2010Q4

REPORT INFORMATION
  Report Type: 
  Country: None (occurrence: None)
  Receive Date: 20101217
  Receipt Date: 20101209
  Transmission Date: 20110411
  Serious: Yes (Other)
  Sender: FDA-Public Use
  Company Number: US-ABBOTT-10P-163-0690542-00

PATIENT
  Sex: Female

DRUGS (2)
  1. LUPRON [Suspect]
     Indication: ENDOMETRIOSIS
  2. LUPRON [Suspect]
     Dates: start: 20101101

REACTIONS (12)
  - ABDOMINAL ADHESIONS [None]
  - ABDOMINAL PAIN UPPER [None]
  - BONE PAIN [None]
  - ENDOMETRIOSIS [None]
  - FALLOPIAN TUBE DISORDER [None]
  - FATIGUE [None]
  - ILL-DEFINED DISORDER [None]
  - INSOMNIA [None]
  - OVARIAN DISORDER [None]
  - PAIN [None]
  - PELVIC ADHESIONS [None]
  - WEIGHT DECREASED [None]
